FAERS Safety Report 7112793-3 (Version None)
Quarter: 2010Q4

REPORT INFORMATION
  Report Type: 
  Country: None (occurrence: None)
  Receive Date: 20101119
  Receipt Date: 20101117
  Transmission Date: 20110411
  Serious: Yes (Death, Hospitalization)
  Sender: FDA-Public Use
  Company Number: PHHY2010FR77599

PATIENT
  Age: 69 Year
  Sex: Female

DRUGS (1)
  1. TEGRETOL [Suspect]
     Dosage: 1 DF, QD
     Route: 048
     Dates: start: 20100101, end: 20100728

REACTIONS (8)
  - CYTOLYTIC HEPATITIS [None]
  - DECREASED APPETITE [None]
  - FAECAL INCONTINENCE [None]
  - FAECES DISCOLOURED [None]
  - HEPATITIS ACUTE [None]
  - JAUNDICE [None]
  - NAUSEA [None]
  - URINE COLOUR ABNORMAL [None]
